FAERS Safety Report 22624283 (Version 1)
Quarter: 2023Q2

REPORT INFORMATION
  Report Type: Spontaneous
  Country: ES (occurrence: ES)
  Receive Date: 20230621
  Receipt Date: 20230621
  Transmission Date: 20230721
  Serious: Yes (Other)
  Sender: FDA-Public Use
  Company Number: ES-AEMPS-1378729

PATIENT
  Age: 40 Year
  Sex: Female

DRUGS (1)
  1. FOSINOPRIL\HYDROCHLOROTHIAZIDE [Suspect]
     Active Substance: FOSINOPRIL\HYDROCHLOROTHIAZIDE
     Indication: Hypertension
     Dosage: 1/24H
     Route: 065
     Dates: start: 20220711, end: 20220805

REACTIONS (1)
  - Erectile dysfunction [Recovered/Resolved]

NARRATIVE: CASE EVENT DATE: 20220805
